FAERS Safety Report 8615813-X (Version None)
Quarter: 2012Q3

REPORT INFORMATION
  Report Type: 
  Country: None (occurrence: None)
  Receive Date: 20120823
  Receipt Date: 20120731
  Transmission Date: 20120928
  Serious: Yes (Life-Threatening, Hospitalization)
  Sender: FDA-Public Use
  Company Number: US-009507513-1208USA001815

PATIENT

DRUGS (1)
  1. INTEGRILIN [Suspect]
     Route: 050

REACTIONS (1)
  - THROMBOCYTOPENIA [None]
